FAERS Safety Report 9358845 (Version 1)
Quarter: 2013Q2

REPORT INFORMATION
  Report Type: Spontaneous
  Country: FR (occurrence: FR)
  Receive Date: 20130620
  Receipt Date: 20130620
  Transmission Date: 20140414
  Serious: Yes (Life-Threatening, Hospitalization)
  Sender: FDA-Public Use
  Company Number: PHHY2013FR061221

PATIENT
  Age: 64 Year
  Sex: Male

DRUGS (2)
  1. GILENYA [Suspect]
     Indication: MULTIPLE SCLEROSIS
     Dosage: 0.5 MG, DAILY
     Route: 048
     Dates: start: 20120515
  2. TEGRETOL [Suspect]
     Indication: FACIAL NEURALGIA
     Dosage: 600 MG, QD
     Route: 048
     Dates: start: 1995

REACTIONS (1)
  - Myocardial infarction [Recovered/Resolved]
